FAERS Safety Report 8464675-2 (Version None)
Quarter: 2012Q2

REPORT INFORMATION
  Report Type: 
  Country: None (occurrence: None)
  Receive Date: 20120626
  Receipt Date: 20120621
  Transmission Date: 20120825
  Serious: Yes (Hospitalization, Other)
  Sender: FDA-Public Use
  Company Number: KR-BAYER-2012-061645

PATIENT
  Sex: Female

DRUGS (3)
  1. NEXAVAR [Suspect]
     Indication: METASTASES TO LUNG
  2. NEXAVAR [Suspect]
     Indication: METASTASES TO LIVER
  3. NEXAVAR [Suspect]
     Indication: ADRENAL CARCINOMA
     Dosage: UNK

REACTIONS (4)
  - HEPATIC HAEMORRHAGE [None]
  - GENERALISED OEDEMA [None]
  - BACK DISORDER [None]
  - BEDRIDDEN [None]
